FAERS Safety Report 19479929 (Version 9)
Quarter: 2022Q1

REPORT INFORMATION
  Report Type: Report from Study
  Country: JP (occurrence: JP)
  Receive Date: 20210701
  Receipt Date: 20220307
  Transmission Date: 20220424
  Serious: Yes (Hospitalization)
  Sender: FDA-Public Use
  Company Number: JP-CHUGAI-2021003778

PATIENT
  Age: 49 Year
  Sex: Female
  Weight: 78.2 kg

DRUGS (12)
  1. ATEZOLIZUMAB [Suspect]
     Active Substance: ATEZOLIZUMAB
     Indication: Pericarditis malignant
     Route: 041
     Dates: start: 20200611, end: 20211130
  2. ATEZOLIZUMAB [Suspect]
     Active Substance: ATEZOLIZUMAB
     Indication: Lung neoplasm malignant
  3. CARBOPLATIN [Suspect]
     Active Substance: CARBOPLATIN
     Indication: Lung neoplasm malignant
     Dosage: AUC5
     Route: 041
  4. CARBOPLATIN [Suspect]
     Active Substance: CARBOPLATIN
     Indication: Pericarditis malignant
  5. ALIMTA [Suspect]
     Active Substance: PEMETREXED DISODIUM
     Indication: Pericarditis malignant
     Dosage: 500 MILLIGRAM/SQ. METER, ONCE/3WEEKS
     Route: 041
  6. ALIMTA [Suspect]
     Active Substance: PEMETREXED DISODIUM
     Indication: Lung neoplasm malignant
  7. LEVOFLOXACIN HEMIHYDRATE [Suspect]
     Active Substance: LEVOFLOXACIN
     Indication: Cystitis
     Route: 048
     Dates: start: 20210618, end: 20210619
  8. TELMISARTAN [Concomitant]
     Active Substance: TELMISARTAN
     Indication: Hypertension
     Dosage: 0.5 DOSAGE FORM, QD
     Route: 048
  9. ZOLPIDEM TARTRATE [Concomitant]
     Active Substance: ZOLPIDEM TARTRATE
     Indication: Insomnia
     Dosage: 5 MILLIGRAM, BID
     Route: 048
  10. PEMAFIBRATE [Concomitant]
     Active Substance: PEMAFIBRATE
     Indication: Hyperlipidaemia
     Dosage: 0.1 MILLIGRAM, BID
     Route: 048
  11. URSODIOL [Concomitant]
     Active Substance: URSODIOL
     Indication: Alanine aminotransferase increased
     Dosage: 200 MILLIGRAM, TID
     Route: 048
     Dates: start: 20200731
  12. ETIZOLAM [Concomitant]
     Active Substance: ETIZOLAM
     Indication: Anxiety
     Dosage: 0.5 MILLIGRAM, QD
     Route: 048
     Dates: start: 20210427

REACTIONS (2)
  - Non-cardiac chest pain [Recovered/Resolved]
  - Pericarditis [Recovering/Resolving]

NARRATIVE: CASE EVENT DATE: 20210619
